FAERS Safety Report 4724250-X (Version None)
Quarter: 2005Q3

REPORT INFORMATION
  Report Type: 
  Country: None (occurrence: None)
  Receive Date: 20050721
  Receipt Date: 20050712
  Transmission Date: 20060218
  Serious: Yes (Life-Threatening, Hospitalization, Other)
  Sender: FDA-Public Use
  Company Number: HQWYE168912JUL05

PATIENT
  Age: 73 Year
  Sex: Female

DRUGS (9)
  1. CORDARONE [Suspect]
     Indication: ATRIAL FIBRILLATION
     Dosage: 1150 MG INTRAVENOUS; 300 MG INTRAVENOUS
     Route: 042
     Dates: start: 20050417, end: 20050417
  2. CORDARONE [Suspect]
     Indication: ATRIAL FLUTTER
     Dosage: 1150 MG INTRAVENOUS; 300 MG INTRAVENOUS
     Route: 042
     Dates: start: 20050417, end: 20050417
  3. CORDARONE [Suspect]
     Indication: ATRIAL FIBRILLATION
     Dosage: 1150 MG INTRAVENOUS; 300 MG INTRAVENOUS
     Route: 042
     Dates: start: 20050419, end: 20050419
  4. CORDARONE [Suspect]
     Indication: ATRIAL FLUTTER
     Dosage: 1150 MG INTRAVENOUS; 300 MG INTRAVENOUS
     Route: 042
     Dates: start: 20050419, end: 20050419
  5. TAZOBAC                    (PIPERACILLIN/TAZOBACTAM) [Concomitant]
  6. KARDEGIC (ACETYLSALICYLATE LYSINE) [Concomitant]
  7. PLAVIX [Concomitant]
  8. FRAXIPARIN  (HEPARIN-FRACTION, CALCIUM SALT) [Concomitant]
  9. SORTIS       (ATORVASATIN  CALCIUM) [Concomitant]
     Dosage: 40MG 1 X/DAY

REACTIONS (2)
  - CIRCULATORY COLLAPSE [None]
  - HEPATIC FAILURE [None]
